FAERS Safety Report 8898859 (Version 2)
Quarter: 2012Q4

REPORT INFORMATION
  Report Type: 
  Country: US (occurrence: US)
  Receive Date: 20121109
  Receipt Date: 20121210
  Transmission Date: 20130627
  Serious: No
  Sender: FDA-Public Use
  Company Number: US-B.I. PHARMACEUTICALS,INC./RIDGEFIELD-2012-BP-27184BP

PATIENT
  Age: 51 Year
  Sex: Female

DRUGS (8)
  1. TRADJENTA [Suspect]
     Indication: DIABETES MELLITUS
     Dosage: 5 mg
     Route: 048
     Dates: start: 201210
  2. TRADJENTA [Suspect]
     Indication: BLOOD GLUCOSE ABNORMAL
  3. MIRAPEX [Suspect]
     Indication: RESTLESS LEGS SYNDROME
     Dosage: 0.75 mg
     Route: 048
     Dates: start: 2008
  4. ACTOS [Concomitant]
     Indication: DIABETES MELLITUS
     Dosage: 30 mg
     Route: 048
  5. GABAPENTIN [Concomitant]
     Indication: EPILEPSY
  6. TOPAMAX [Concomitant]
     Indication: MIGRAINE
  7. ASPIRIN [Concomitant]
     Dosage: 81 mg
     Route: 048
  8. LAMOTRIGINE [Concomitant]
     Indication: EPILEPSY

REACTIONS (3)
  - Dizziness [Not Recovered/Not Resolved]
  - Somnolence [Not Recovered/Not Resolved]
  - Hair texture abnormal [Not Recovered/Not Resolved]
